FAERS Safety Report 25895282 (Version 1)
Quarter: 2025Q4

REPORT INFORMATION
  Report Type: Spontaneous
  Country: EU (occurrence: EU)
  Receive Date: 20251008
  Receipt Date: 20251008
  Transmission Date: 20260117
  Serious: Yes (Other)
  Sender: INCYTE
  Company Number: EU-002147023-NVSC2025HR148739

PATIENT

DRUGS (1)
  1. RUXOLITINIB [Suspect]
     Active Substance: RUXOLITINIB
     Indication: Myelofibrosis
     Dosage: 20 MG (2X)
     Route: 065

REACTIONS (11)
  - Cataract [Unknown]
  - Glaucoma [Unknown]
  - Cerebral ischaemia [Recovered/Resolved]
  - Pyrexia [Recovered/Resolved]
  - Squamous cell carcinoma [Unknown]
  - Speech disorder [Unknown]
  - Rhabdomyolysis [Recovered/Resolved]
  - Anaemia [Unknown]
  - Weight increased [Unknown]
  - Entropion [Unknown]
  - White blood cell count increased [Unknown]
